FAERS Safety Report 21525318 (Version 1)
Quarter: 2022Q4

REPORT INFORMATION
  Report Type: Spontaneous
  Country: US (occurrence: US)
  Receive Date: 20221030
  Receipt Date: 20221030
  Transmission Date: 20230113
  Serious: Yes (Life-Threatening)
  Sender: FDA-Public Use
  Company Number: US-NOVARTISPH-NVSC2022US243771

PATIENT
  Sex: Female
  Weight: 94.03 kg

DRUGS (2)
  1. EVEROLIMUS [Suspect]
     Active Substance: EVEROLIMUS
     Indication: Product used for unknown indication
     Dosage: UNK
     Route: 065
  2. LENVIMA [Suspect]
     Active Substance: LENVATINIB
     Indication: Renal cell carcinoma
     Dosage: 14 MG, QD (10MG/4MG)
     Route: 048

REACTIONS (4)
  - Blood pressure decreased [Unknown]
  - Intracranial mass [Unknown]
  - Asthenia [Unknown]
  - Fatigue [Unknown]
